FAERS Safety Report 5411012-3 (Version None)
Quarter: 2007Q3

REPORT INFORMATION
  Report Type: 
  Country: None (occurrence: None)
  Receive Date: 20070810
  Receipt Date: 20070807
  Transmission Date: 20080115
  Serious: Yes (Other)
  Sender: FDA-Public Use
  Company Number: AU-BRISTOL-MYERS SQUIBB COMPANY-13871744

PATIENT
  Sex: Female

DRUGS (1)
  1. KARVEZIDE TABS 300MG/12.5MG [Suspect]

REACTIONS (2)
  - SYNCOPE [None]
  - WEIGHT DECREASED [None]
